FAERS Safety Report 5293102-1 (Version None)
Quarter: 2007Q2

REPORT INFORMATION
  Report Type: 
  Country: None (occurrence: None)
  Receive Date: 20070404
  Receipt Date: 20070327
  Transmission Date: 20071010
  Serious: Yes (Hospitalization, Other)
  Sender: FDA-Public Use
  Company Number: S06-USA-04318-01

PATIENT
  Age: 81 Year
  Sex: Male

DRUGS (15)
  1. LEXAPRO [Suspect]
     Dosage: 10 MG QD PO
     Route: 048
     Dates: start: 20060522, end: 20061009
  2. DIAZEPAM [Concomitant]
  3. MUCINEX [Concomitant]
  4. FLOMAX [Concomitant]
  5. ASPIRIN [Concomitant]
  6. ZETIA [Concomitant]
  7. SYNTHROID [Concomitant]
  8. LISINOPRIL [Concomitant]
  9. CENTRUM SILVER (VITAMIN) [Concomitant]
  10. NORVASC [Concomitant]
  11. TRIAMTERENE AND HYDROCHLOROTHIAZIDE [Concomitant]
  12. SINGULAIR [Concomitant]
  13. NEXIUM [Concomitant]
  14. ASTELIN [Concomitant]
  15. FLUTICASONE PROPIONATE [Concomitant]

REACTIONS (16)
  - ASTHENIA [None]
  - BUNDLE BRANCH BLOCK RIGHT [None]
  - CONDITION AGGRAVATED [None]
  - DIZZINESS [None]
  - ELECTROCARDIOGRAM QRS COMPLEX PROLONGED [None]
  - FALL [None]
  - HYPERTENSION [None]
  - LOSS OF CONSCIOUSNESS [None]
  - NAUSEA [None]
  - PALPITATIONS [None]
  - PRESYNCOPE [None]
  - SICK SINUS SYNDROME [None]
  - SUPRAVENTRICULAR EXTRASYSTOLES [None]
  - SYNCOPE VASOVAGAL [None]
  - VENTRICULAR HYPERTROPHY [None]
  - VOMITING [None]
